FAERS Safety Report 7930126-7 (Version None)
Quarter: 2011Q4

REPORT INFORMATION
  Report Type: 
  Country: None (occurrence: None)
  Receive Date: 20111121
  Receipt Date: 20111118
  Transmission Date: 20120403
  Serious: Yes (Other)
  Sender: FDA-Public Use
  Company Number: US-PFIZER INC-2011123464

PATIENT
  Sex: Female
  Weight: 68.027 kg

DRUGS (7)
  1. PRAVASTATIN [Concomitant]
     Indication: BLOOD CHOLESTEROL INCREASED
     Dosage: UNK
  2. SUTENT [Suspect]
     Indication: RENAL CELL CARCINOMA
     Dosage: 25 MG, DAILY ON DAYS 1-7
     Route: 048
     Dates: start: 20110516
  3. SUTENT [Suspect]
     Dosage: 50 MG, 1X/DAY, FOR DAYS 22-28
     Route: 048
     Dates: start: 20110606
  4. LISINOPRIL [Concomitant]
  5. SUTENT [Suspect]
     Dosage: 50 MG, 1X/DAY
     Route: 048
     Dates: start: 20110516
  6. AMLODIPINE [Concomitant]
  7. SUTENT [Suspect]
     Dosage: 37.5 MG, 1X/DAY, ON DAYS 8-21
     Route: 048

REACTIONS (3)
  - HAEMATOCHEZIA [None]
  - PALMAR-PLANTAR ERYTHRODYSAESTHESIA SYNDROME [None]
  - HYPOTENSION [None]
